FAERS Safety Report 20089065 (Version 1)
Quarter: 2021Q4

REPORT INFORMATION
  Report Type: Spontaneous
  Country: JP (occurrence: JP)
  Receive Date: 20211119
  Receipt Date: 20211119
  Transmission Date: 20220304
  Serious: Yes (Other)
  Sender: FDA-Public Use
  Company Number: JP-SUN PHARMACEUTICAL INDUSTRIES LTD-2021RR-317942

PATIENT
  Age: 78 Year
  Sex: Male

DRUGS (3)
  1. OXALIPLATIN [Suspect]
     Active Substance: OXALIPLATIN
     Indication: Colon cancer stage III
     Dosage: 130 MILLIGRAM/SQ. METER, DAY 1, EVERY 3 WEEKS
     Route: 065
  2. CAPECITABINE [Suspect]
     Active Substance: CAPECITABINE
     Indication: Colon cancer stage III
     Dosage: 1000 MILLIGRAM/SQ. METER, BID, ON DAYS 1-14, EVERY 3 WEEKS
     Route: 065
  3. BEVACIZUMAB [Suspect]
     Active Substance: BEVACIZUMAB
     Indication: Colon cancer stage III
     Dosage: 7.5 MILLIGRAM/KILOGRAM ON DAY 1, EVERY 3 WEEKS
     Route: 065

REACTIONS (3)
  - Therapeutic product effect incomplete [Unknown]
  - Carcinoembryonic antigen increased [Recovering/Resolving]
  - Peripheral sensory neuropathy [Unknown]
